FAERS Safety Report 6475252-7 (Version None)
Quarter: 2009Q4

REPORT INFORMATION
  Report Type: 
  Country: None (occurrence: None)
  Receive Date: 20091204
  Receipt Date: 20091124
  Transmission Date: 20100525
  Serious: Yes (Hospitalization)
  Sender: FDA-Public Use
  Company Number: BE-JNJFOC-20091107159

PATIENT
  Age: 60 Year
  Sex: Female
  Weight: 90 kg

DRUGS (10)
  1. ACETAMINOPHEN [Suspect]
  2. ACETAMINOPHEN [Suspect]
     Indication: DRUG USE FOR UNKNOWN INDICATION
     Dosage: X 10 DAYS
  3. VALPROIC ACID [Concomitant]
     Indication: CONVULSION
  4. CARBAMAZEPINE [Concomitant]
     Indication: CONVULSION
  5. PROPOFOL [Concomitant]
     Indication: ANAESTHESIA
  6. SEVOFLURANE [Concomitant]
     Indication: ANAESTHESIA
  7. SUFENTANIL CITRATE [Concomitant]
     Indication: ANAESTHESIA
  8. ROCURONIUM BROMIDE [Concomitant]
     Indication: ANAESTHESIA
  9. DICLOFENAC [Concomitant]
     Indication: ANALGESIC THERAPY
  10. MORPHINE [Concomitant]
     Indication: ANALGESIC THERAPY

REACTIONS (2)
  - HEPATITIS FULMINANT [None]
  - RENAL FAILURE [None]
